FAERS Safety Report 8485125-6 (Version None)
Quarter: 2012Q2

REPORT INFORMATION
  Report Type: 
  Country: None (occurrence: None)
  Receive Date: 20120625
  Receipt Date: 20120608
  Transmission Date: 20120825
  Serious: Yes (Hospitalization)
  Sender: FDA-Public Use
  Company Number: TPA2012A03683

PATIENT
  Age: 80 Year
  Sex: Male
  Weight: 97.0698 kg

DRUGS (1)
  1. DEXILANT [Suspect]
     Indication: GASTROOESOPHAGEAL REFLUX DISEASE
     Dosage: 60 MG, 1 IN 1 D, PER ORAL
     Route: 048

REACTIONS (3)
  - POST PROCEDURAL SWELLING [None]
  - CONSTIPATION [None]
  - PROCEDURAL PAIN [None]
